FAERS Safety Report 13165177 (Version 1)
Quarter: 2017Q1

REPORT INFORMATION
  Report Type: Other
  Country: US (occurrence: US)
  Receive Date: 20170130
  Receipt Date: 20170130
  Transmission Date: 20170428
  Serious: Yes (Hospitalization, Other)
  Sender: FDA-Public Use
  Company Number: US-HETERO LABS LTD-1062541

PATIENT
  Age: 54 Year
  Sex: Female

DRUGS (4)
  1. LITHIUM. [Suspect]
     Active Substance: LITHIUM
     Indication: BIPOLAR DISORDER
     Route: 065
  2. QUETIAPINE FUMARATE. [Concomitant]
     Active Substance: QUETIAPINE FUMARATE
     Route: 065
  3. ZOLPIDEM [Concomitant]
     Active Substance: ZOLPIDEM\ZOLPIDEM TARTRATE
     Route: 065
  4. AMITRIPTYLINE HYDROCHLORIDE. [Concomitant]
     Active Substance: AMITRIPTYLINE HYDROCHLORIDE
     Route: 065

REACTIONS (4)
  - Pyrexia [Recovered/Resolved]
  - Electrocardiogram abnormal [Recovered/Resolved]
  - Pneumonia aspiration [Recovered/Resolved]
  - Toxicity to various agents [Recovered/Resolved]
